FAERS Safety Report 8095570-9 (Version None)
Quarter: 2012Q1

REPORT INFORMATION
  Report Type: 
  Country: None (occurrence: None)
  Receive Date: 20120131
  Receipt Date: 20120116
  Transmission Date: 20120608
  Serious: Yes (Hospitalization)
  Sender: FDA-Public Use
  Company Number: JP-WATSON-2012-01177

PATIENT
  Age: 38 Year
  Sex: Male

DRUGS (2)
  1. PAROXETINE HYDROCHLORIDE [Suspect]
     Indication: DEPRESSION
     Dosage: 20 MG, DAILY
  2. RISPERIDONE [Suspect]
     Indication: HALLUCINATION
     Dosage: 2 MG, DAILY

REACTIONS (3)
  - HALLUCINATION, VISUAL [None]
  - DEPRESSION [None]
  - HALLUCINATION, AUDITORY [None]
